FAERS Safety Report 7825765-8 (Version None)
Quarter: 2011Q4

REPORT INFORMATION
  Report Type: 
  Country: None (occurrence: None)
  Receive Date: 20111019
  Receipt Date: 20111013
  Transmission Date: 20120403
  Serious: Yes (Other)
  Sender: FDA-Public Use
  Company Number: PHEH2008US04229

PATIENT
  Sex: Male
  Weight: 102.4 kg

DRUGS (12)
  1. OXYCODONE HCL [Concomitant]
     Dosage: 10 MG, BID
     Route: 048
  2. MAGNESIUM HYDROXIDE [Concomitant]
  3. ZOMETA [Suspect]
     Indication: BONE DISORDER
     Dosage: UNK, EVERY 28 DAYS
     Route: 042
  4. BENEMID [Concomitant]
  5. CHLORHEXIDINE GLUCONATE [Concomitant]
  6. SPIRONOLACTONE [Concomitant]
  7. CHEMOTHERAPEUTICS [Concomitant]
  8. AREDIA [Suspect]
  9. CELEBREX [Concomitant]
  10. CALCIUM WITH VITAMIN D [Concomitant]
  11. AUGMENTIN '125' [Concomitant]
  12. BIAXIN [Concomitant]
     Dosage: 500 MG, UNK

REACTIONS (28)
  - INFECTION [None]
  - MULTIPLE MYELOMA [None]
  - PLEURAL EFFUSION [None]
  - IMPAIRED HEALING [None]
  - OSTEONECROSIS OF JAW [None]
  - OSTEOARTHRITIS [None]
  - LUMBAR VERTEBRAL FRACTURE [None]
  - BACK PAIN [None]
  - DYSPNOEA [None]
  - GAIT DISTURBANCE [None]
  - DIAPHRAGMATIC PARALYSIS [None]
  - COMPRESSION FRACTURE [None]
  - VERTEBRAL FORAMINAL STENOSIS [None]
  - OSTEOPOROSIS [None]
  - ATELECTASIS [None]
  - TOOTHACHE [None]
  - GINGIVAL BLEEDING [None]
  - SCAR [None]
  - FEMUR FRACTURE [None]
  - PAIN [None]
  - DIABETES MELLITUS [None]
  - INTERVERTEBRAL DISC PROTRUSION [None]
  - GOUT [None]
  - AMNESIA [None]
  - PROSTATE INFECTION [None]
  - ABSCESS [None]
  - LUMBAR SPINAL STENOSIS [None]
  - OEDEMA PERIPHERAL [None]
